FAERS Safety Report 8308587-3 (Version None)
Quarter: 2012Q2

REPORT INFORMATION
  Report Type: 
  Country: None (occurrence: None)
  Receive Date: 20120424
  Receipt Date: 20120417
  Transmission Date: 20120825
  Serious: Yes (Hospitalization)
  Sender: FDA-Public Use
  Company Number: US-BAYER-201012723NA

PATIENT
  Age: 22 Year
  Sex: Female
  Weight: 112.9 kg

DRUGS (7)
  1. YASMIN [Suspect]
     Dosage: AS USED DOSE: UNK
     Route: 048
     Dates: start: 20091001, end: 20091101
  2. PERCOCET [Concomitant]
  3. TYLENOL (CAPLET) [Concomitant]
  4. IBUPROFEN (ADVIL) [Concomitant]
  5. YAZ [Suspect]
     Dosage: AS USED DOSE: UNK
     Route: 048
     Dates: start: 20070101, end: 20091001
  6. ANTITHROMBOTIC AGENTS [Concomitant]
  7. ANTIBIOTICS [Concomitant]

REACTIONS (3)
  - PULMONARY INFARCTION [None]
  - CHEST PAIN [None]
  - PULMONARY EMBOLISM [None]
